FAERS Safety Report 5690163-2 (Version None)
Quarter: 2008Q2

REPORT INFORMATION
  Report Type: 
  Country: None (occurrence: None)
  Receive Date: 20080401
  Receipt Date: 20080307
  Transmission Date: 20081010
  Serious: Yes (Death, Hospitalization, Other)
  Sender: FDA-Public Use
  Company Number: DE-BAYER-200814953GPV

PATIENT

DRUGS (4)
  1. FLUDARABINE [Suspect]
     Indication: STEM CELL TRANSPLANT
     Dosage: AS USED: 30 MG/M2
     Route: 065
  2. CYTARABINE [Suspect]
     Indication: STEM CELL TRANSPLANT
     Dosage: AS USED: 2000 MG/M2
     Route: 065
  3. AMSACRINE [Suspect]
     Indication: STEM CELL TRANSPLANT
     Dosage: AS USED: 100 MG/M2
     Route: 065
  4. THYMOGLOBULIN [Suspect]
     Indication: STEM CELL TRANSPLANT
     Dosage: AS USED: 20 MG/KG
     Route: 065

REACTIONS (8)
  - CHRONIC GRAFT VERSUS HOST DISEASE [None]
  - DIARRHOEA [None]
  - HAEMOLYTIC URAEMIC SYNDROME [None]
  - INFECTION [None]
  - MUCOSAL INFLAMMATION [None]
  - NAUSEA [None]
  - NEUTROPENIA [None]
  - THROMBOTIC THROMBOCYTOPENIC PURPURA [None]
